FAERS Safety Report 4929067-9 (Version None)
Quarter: 2006Q1

REPORT INFORMATION
  Report Type: 
  Country: None (occurrence: None)
  Receive Date: 20060301
  Receipt Date: 20050304
  Transmission Date: 20060701
  Serious: Yes (Hospitalization)
  Sender: FDA-Public Use
  Company Number: US-MERCK-0503USA00947

PATIENT
  Age: 54 Year
  Sex: Female

DRUGS (1)
  1. VIOXX [Suspect]
     Indication: ARTHRITIS
     Route: 048
     Dates: start: 20000101, end: 20030905

REACTIONS (23)
  - ACUTE MYOCARDIAL INFARCTION [None]
  - ACUTE PULMONARY OEDEMA [None]
  - ANGIONEUROTIC OEDEMA [None]
  - CARDIOGENIC SHOCK [None]
  - CELLULITIS [None]
  - COMPARTMENT SYNDROME [None]
  - DEEP VEIN THROMBOSIS [None]
  - DEPRESSION [None]
  - EJECTION FRACTION DECREASED [None]
  - HEPATIC FUNCTION ABNORMAL [None]
  - HYPOTENSION [None]
  - INGROWING NAIL [None]
  - INJURY [None]
  - ISCHAEMIC CARDIOMYOPATHY [None]
  - ISCHAEMIC CEREBRAL INFARCTION [None]
  - LEG AMPUTATION [None]
  - NAUSEA [None]
  - PERIPHERAL VASCULAR DISORDER [None]
  - RENAL IMPAIRMENT [None]
  - SOMNOLENCE [None]
  - VENTRICULAR TACHYCARDIA [None]
  - WEIGHT DECREASED [None]
  - WOUND [None]
